FAERS Safety Report 19797563 (Version 1)
Quarter: 2021Q3

REPORT INFORMATION
  Report Type: Spontaneous
  Country: US (occurrence: US)
  Receive Date: 20210907
  Receipt Date: 20210907
  Transmission Date: 20211014
  Serious: No
  Sender: FDA-Public Use
  Company Number: US-BIOVITRUM-2021US8099

PATIENT
  Age: 7 Year
  Sex: Female

DRUGS (1)
  1. KINERET [Suspect]
     Active Substance: ANAKINRA
     Indication: INFECTION
     Route: 058
     Dates: start: 202106

REACTIONS (3)
  - Off label use [Unknown]
  - Inflammation [Unknown]
  - Nasal congestion [Unknown]

NARRATIVE: CASE EVENT DATE: 202106
